FAERS Safety Report 6087702-9 (Version None)
Quarter: 2009Q1

REPORT INFORMATION
  Report Type: 
  Country: None (occurrence: None)
  Receive Date: 20090223
  Receipt Date: 20090210
  Transmission Date: 20090719
  Serious: Yes (Hospitalization)
  Sender: FDA-Public Use
  Company Number: US-ROCHE-613777

PATIENT
  Age: 40 Year
  Sex: Male
  Weight: 59 kg

DRUGS (8)
  1. CAPECITABINE [Suspect]
     Dosage: FREQUENCY REPORTED AS DAY 1-7, EVERY 14 DAY.
     Route: 048
     Dates: start: 20081002, end: 20090119
  2. PHY906 [Suspect]
     Dosage: FREQUENCY REPORTED AS DAY 1 TO 7, EVERY 14 DAY.
     Route: 048
     Dates: start: 20081002, end: 20090116
  3. PROTONIX [Concomitant]
  4. FENTANYL TRANSDERMAL SYSTEM [Concomitant]
     Dosage: FREQUENCY REPORTED AS 50 MCG PER HOUR.
  5. CREON [Concomitant]
  6. ZOFRAN [Concomitant]
     Dosage: FREQUENCY REPORTED AS PRN.
  7. VITAMIN B6 [Concomitant]
  8. DILAUDID [Concomitant]

REACTIONS (1)
  - BILE DUCT STENOSIS [None]
